FAERS Safety Report 8355309-6 (Version None)
Quarter: 2012Q2

REPORT INFORMATION
  Report Type: 
  Country: None (occurrence: None)
  Receive Date: 20120511
  Receipt Date: 20110609
  Transmission Date: 20120825
  Serious: No
  Sender: FDA-Public Use
  Company Number: US-TEVA-2011002944

PATIENT
  Sex: Female
  Weight: 90.8 kg

DRUGS (3)
  1. LAMICTAL [Concomitant]
     Dates: start: 20060101
  2. NUVIGIL [Suspect]
     Indication: DEPRESSION
     Dosage: 250 MILLIGRAM;
     Route: 048
     Dates: start: 20110601
  3. CELEXA [Concomitant]
     Dates: start: 20090101

REACTIONS (1)
  - DRUG TOLERANCE [None]
